FAERS Safety Report 25515110 (Version 3)
Quarter: 2025Q3

REPORT INFORMATION
  Report Type: Spontaneous
  Country: US (occurrence: US)
  Receive Date: 20250703
  Receipt Date: 20250911
  Transmission Date: 20251021
  Serious: No
  Sender: ABBVIE
  Company Number: US-ABBVIE-6348788

PATIENT
  Age: 34 Year
  Sex: Female
  Weight: 83 kg

DRUGS (1)
  1. RISANKIZUMAB [Suspect]
     Active Substance: RISANKIZUMAB
     Indication: Psoriasis
     Route: 058

REACTIONS (2)
  - Product storage error [Not Recovered/Not Resolved]
  - Product distribution issue [Unknown]

NARRATIVE: CASE EVENT DATE: 20250623
